FAERS Safety Report 21813357 (Version 3)
Quarter: 2023Q1

REPORT INFORMATION
  Report Type: Report from Study
  Country: BR (occurrence: BR)
  Receive Date: 20230103
  Receipt Date: 20230124
  Transmission Date: 20230417
  Serious: Yes (Other)
  Sender: FDA-Public Use
  Company Number: BR-CELLTRION INC.-2022BR022005

PATIENT

DRUGS (2)
  1. INFLIXIMAB [Suspect]
     Active Substance: INFLIXIMAB
     Indication: Crohn^s disease
     Dosage: 4 AMPOLES EVERY 2 MONTHS [DATE START: 2 MONTHS AGO]
     Route: 042
  2. AZATHIOPRINE [Concomitant]
     Active Substance: AZATHIOPRINE
     Indication: Crohn^s disease
     Dosage: 8 PILLS PER DAY [START: 15 YEARS AGO]
     Route: 048

REACTIONS (14)
  - Crohn^s disease [Unknown]
  - Seizure [Unknown]
  - Generalised oedema [Unknown]
  - Urinary tract infection [Unknown]
  - Vomiting [Unknown]
  - Fatigue [Unknown]
  - Dyspnoea [Unknown]
  - Pain in extremity [Unknown]
  - Abdominal pain [Unknown]
  - Nausea [Recovered/Resolved]
  - Pain [Recovered/Resolved]
  - Abdominal distension [Unknown]
  - Intentional dose omission [Unknown]
  - Drug ineffective [Unknown]
